FAERS Safety Report 5035483-X (Version None)
Quarter: 2006Q2

REPORT INFORMATION
  Report Type: 
  Country: None (occurrence: None)
  Receive Date: 20060622
  Receipt Date: 20060616
  Transmission Date: 20061013
  Serious: Yes (Disabling, Other)
  Sender: FDA-Public Use
  Company Number: 2005169358

PATIENT
  Age: 61 Year
  Sex: Female
  Weight: 70 kg

DRUGS (3)
  1. NICOTINE [Suspect]
     Dosage: TRANSDERMAL
     Route: 062
     Dates: start: 20040401, end: 20040701
  2. NICORETTE [Suspect]
     Dosage: 4-5 (2 MG) PIECES DAILY, ORAL
     Route: 048
     Dates: start: 20040701
  3. CONJUGATED ESTROGENS [Concomitant]

REACTIONS (8)
  - DRUG DEPENDENCE [None]
  - DRUG INEFFECTIVE [None]
  - GINGIVAL HYPERPLASIA [None]
  - GINGIVAL ULCERATION [None]
  - GINGIVITIS [None]
  - HORMONE LEVEL ABNORMAL [None]
  - HYPERHIDROSIS [None]
  - PURULENCE [None]
